FAERS Safety Report 8247634-4 (Version None)
Quarter: 2012Q1

REPORT INFORMATION
  Report Type: 
  Country: None (occurrence: None)
  Receive Date: 20120330
  Receipt Date: 20120321
  Transmission Date: 20120608
  Serious: Yes (Other)
  Sender: FDA-Public Use
  Company Number: US-JNJFOC-20111207720

PATIENT
  Sex: Female

DRUGS (5)
  1. INVEGA SUSTENNA [Suspect]
     Route: 030
  2. CLONAZEPAM [Concomitant]
     Indication: AKATHISIA
     Route: 065
  3. CLONAZEPAM [Concomitant]
     Indication: ANXIETY
     Route: 065
  4. INVEGA SUSTENNA [Suspect]
     Indication: PSYCHOTIC DISORDER
     Route: 030
     Dates: start: 20111013, end: 20120223
  5. RISPERDAL [Suspect]
     Indication: PRODUCT USED FOR UNKNOWN INDICATION
     Route: 048

REACTIONS (4)
  - INSOMNIA [None]
  - ADVERSE DRUG REACTION [None]
  - RESTLESSNESS [None]
  - CONVULSION [None]
